FAERS Safety Report 9454524 (Version 1)
Quarter: 2013Q3

REPORT INFORMATION
  Report Type: Spontaneous
  Country: DE (occurrence: DE)
  Receive Date: 20130812
  Receipt Date: 20130812
  Transmission Date: 20140515
  Serious: Yes (Hospitalization, Other)
  Sender: FDA-Public Use
  Company Number: DE-TEVA-423701GER

PATIENT
  Age: 1 Day
  Sex: Male

DRUGS (7)
  1. DIAZEPAM [Suspect]
     Route: 064
  2. TRILEPTAL [Suspect]
     Route: 064
  3. LYRICA [Suspect]
     Route: 064
  4. RIVOTRIL [Suspect]
     Route: 064
  5. BETAMETHASON [Concomitant]
     Route: 064
  6. KALINOR-BRAUSETABLETTEN [Concomitant]
     Route: 064
  7. NATRIUMCHLORID [Concomitant]
     Route: 064

REACTIONS (4)
  - Neonatal respiratory distress syndrome [Recovered/Resolved]
  - Bradycardia neonatal [Recovered/Resolved]
  - Apnoea neonatal [Recovered/Resolved]
  - Feeding disorder neonatal [Recovered/Resolved]
